FAERS Safety Report 9442848 (Version 3)
Quarter: 2013Q4

REPORT INFORMATION
  Report Type: Report from Study
  Country: FR (occurrence: FR)
  Receive Date: 20130806
  Receipt Date: 20131022
  Transmission Date: 20140711
  Serious: Yes (Hospitalization)
  Sender: FDA-Public Use
  Company Number: FR-PFIZER INC-2013217908

PATIENT
  Age: 63 Year
  Sex: Male
  Weight: 53 kg

DRUGS (6)
  1. SUTENT [Suspect]
     Indication: METASTATIC RENAL CELL CARCINOMA
     Dosage: 50 MG, UNK
     Route: 048
     Dates: start: 20130713, end: 20130720
  2. LANTUS [Concomitant]
     Indication: DIABETES MELLITUS
     Dosage: 6.0 IU, UNK
     Route: 058
  3. HUMALOG [Concomitant]
     Indication: DIABETES MELLITUS
     Dosage: UNK
     Route: 058
  4. OMEPRAZOLE [Concomitant]
     Indication: GASTRIC ULCER
     Dosage: 60 MG, DAILY
     Route: 048
  5. ORACILLINE [Concomitant]
     Indication: SPLENECTOMY
     Dosage: 1.0 IU, UNK
     Route: 048
  6. PRIMPERAN [Concomitant]
     Indication: NAUSEA
     Dosage: 10 MG, DAILY
     Route: 048
     Dates: start: 20130708

REACTIONS (3)
  - General physical health deterioration [Recovered/Resolved]
  - Vomiting [Recovered/Resolved]
  - Dehydration [Recovered/Resolved]
